FAERS Safety Report 8362417 (Version 6)
Quarter: 2012Q4

REPORT INFORMATION
  Report Type: 
  Country: US (occurrence: US)
  Receive Date: 20120130
  Receipt Date: 20120907
  Transmission Date: 20130627
  Serious: Yes (Other)
  Sender: FDA-Public Use
  Company Number: US-ROCHE-1034518

PATIENT
  Age: 16 Year
  Sex: Female

DRUGS (2)
  1. ACCUTANE [Suspect]
     Indication: ACNE
     Route: 065
     Dates: start: 19840215
  2. ACCUTANE [Suspect]
     Route: 065
     Dates: start: 19940205, end: 19940804

REACTIONS (8)
  - Inflammatory bowel disease [Unknown]
  - Anxiety [Unknown]
  - Colitis ulcerative [Unknown]
  - Abdominal pain [Unknown]
  - Sinusitis [Unknown]
  - Otorrhoea [Unknown]
  - Cyst [Unknown]
  - Depression [Unknown]
